FAERS Safety Report 24573538 (Version 1)
Quarter: 2024Q4

REPORT INFORMATION
  Report Type: Spontaneous
  Country: NO (occurrence: NO)
  Receive Date: 20241102
  Receipt Date: 20241102
  Transmission Date: 20250115
  Serious: Yes (Other)
  Sender: TEVA
  Company Number: NO-TEVA-VS-3258509

PATIENT

DRUGS (1)
  1. AJOVY [Suspect]
     Active Substance: FREMANEZUMAB-VFRM
     Indication: Product used for unknown indication
     Dosage: DOSE: 225/1.5 MG/ML
     Route: 065

REACTIONS (2)
  - Pelvic haemorrhage [Recovering/Resolving]
  - Alopecia [Unknown]
